FAERS Safety Report 7616707-9 (Version None)
Quarter: 2011Q3

REPORT INFORMATION
  Report Type: 
  Country: None (occurrence: None)
  Receive Date: 20110718
  Receipt Date: 20110711
  Transmission Date: 20111222
  Serious: Yes (Hospitalization, Other)
  Sender: FDA-Public Use
  Company Number: FR-BRISTOL-MYERS SQUIBB COMPANY-15898869

PATIENT
  Age: 63 Year
  Sex: Male

DRUGS (6)
  1. PLAVIX [Suspect]
     Indication: ATRIAL FIBRILLATION
     Route: 048
     Dates: end: 20110524
  2. AMIODARONE HCL [Concomitant]
     Route: 048
  3. COUMADIN [Suspect]
     Indication: ATRIAL FIBRILLATION
     Route: 048
     Dates: end: 20110524
  4. ATENOLOL [Concomitant]
     Route: 048
  5. ATORVASTATIN CALCIUM [Suspect]
     Route: 048
  6. RAMIPRIL [Concomitant]
     Route: 048

REACTIONS (3)
  - ANAEMIA [None]
  - POLYP [None]
  - MELAENA [None]
